FAERS Safety Report 16050045 (Version 2)
Quarter: 2019Q1

REPORT INFORMATION
  Report Type: Spontaneous
  Country: CZ (occurrence: CZ)
  Receive Date: 20190308
  Receipt Date: 20190318
  Transmission Date: 20190418
  Serious: Yes (Other)
  Sender: FDA-Public Use
  Company Number: CZ-ROCHE-2279286

PATIENT
  Sex: Female

DRUGS (3)
  1. RIVOTRIL [Suspect]
     Active Substance: CLONAZEPAM
     Indication: BIPOLAR DISORDER
     Dosage: THE DOSAGE 0-0-1 FOR NIGHT, AROUND 22-23 O^CLOCK
     Route: 048
  2. ZYPADHERA [Concomitant]
     Active Substance: OLANZAPINE PAMOATE
     Indication: BIPOLAR DISORDER
     Dosage: IN THE MORNING AROUND 8-9 O^CLOCK
     Route: 030
  3. VALPROAT CHRONO [Concomitant]
     Active Substance: VALPROATE SODIUM
     Indication: BIPOLAR DISORDER
     Dosage: THE DOSAGE 0-0-1, AROUND 20-21 O^CLOCK
     Route: 065

REACTIONS (2)
  - Choking [Recovered/Resolved]
  - Dehydration [Unknown]
